FAERS Safety Report 6589556-0 (Version None)
Quarter: 2010Q1

REPORT INFORMATION
  Report Type: 
  Country: None (occurrence: None)
  Receive Date: 20100212
  Receipt Date: 20100125
  Transmission Date: 20100710
  Serious: Yes (Hospitalization)
  Sender: FDA-Public Use
  Company Number: 2009SP003415

PATIENT
  Sex: Male

DRUGS (5)
  1. ALVESCO [Suspect]
     Indication: ASTHMA
     Dosage: 400 UG ; QD ; INHALATION
     Route: 055
     Dates: start: 20090314, end: 20090417
  2. THEO-DUR [Concomitant]
  3. HOKUNALIN [Concomitant]
  4. MUCODYNE [Concomitant]
  5. CRAVIT [Concomitant]

REACTIONS (2)
  - ANAEMIA [None]
  - PNEUMONIA [None]
